FAERS Safety Report 19573192 (Version 4)
Quarter: 2021Q3

REPORT INFORMATION
  Report Type: Report from Study
  Country: None (occurrence: US)
  Receive Date: 20210716
  Receipt Date: 20210811
  Transmission Date: 20211014
  Serious: Yes (Hospitalization, Other)
  Sender: FDA-Public Use
  Company Number: US-ABBVIE-21K-163-3990346-00

PATIENT
  Age: 56 Year
  Sex: Male
  Weight: 82.63 kg

DRUGS (11)
  1. MODERNA COVID?19 VACCINE [Concomitant]
     Active Substance: CX-024414
     Dosage: MODERNA
     Route: 030
     Dates: start: 202010, end: 202010
  2. BUSPAR [Concomitant]
     Active Substance: BUSPIRONE HYDROCHLORIDE
     Indication: ANXIETY
  3. ELIQUIS [Concomitant]
     Active Substance: APIXABAN
     Indication: PRODUCT USED FOR UNKNOWN INDICATION
  4. CREON [Suspect]
     Active Substance: PANCRELIPASE AMYLASE\PANCRELIPASE LIPASE\PANCRELIPASE PROTEASE
     Indication: PANCREATIC DISORDER
  5. METHOTREXATE. [Concomitant]
     Active Substance: METHOTREXATE
     Indication: PRODUCT USED FOR UNKNOWN INDICATION
  6. CREON [Suspect]
     Active Substance: PANCRELIPASE AMYLASE\PANCRELIPASE LIPASE\PANCRELIPASE PROTEASE
     Indication: WEIGHT DECREASED
     Dosage: 4 CAPSULES WITH EACH MEAL AND 2 CAPSULES WITH EACH SNACK
     Route: 048
     Dates: start: 20210805
  7. CREON [Suspect]
     Active Substance: PANCRELIPASE AMYLASE\PANCRELIPASE LIPASE\PANCRELIPASE PROTEASE
     Indication: PANCREATIC DUCT DILATATION
     Dosage: 4 CAPSULES WITH EACH MEAL AND 2 CAPSULES WITH EACH SNACK
     Route: 048
     Dates: start: 202011, end: 20210604
  8. MODERNA COVID?19 VACCINE [Concomitant]
     Active Substance: CX-024414
     Indication: COVID-19 IMMUNISATION
     Dosage: MODERNA
     Route: 030
     Dates: start: 202010, end: 202010
  9. LISINOPRIL. [Concomitant]
     Active Substance: LISINOPRIL
     Indication: HYPERTENSION
  10. CREON [Suspect]
     Active Substance: PANCRELIPASE AMYLASE\PANCRELIPASE LIPASE\PANCRELIPASE PROTEASE
     Indication: STEATORRHOEA
  11. PANTOPRAZOLE [Concomitant]
     Active Substance: PANTOPRAZOLE
     Indication: PRODUCT USED FOR UNKNOWN INDICATION

REACTIONS (9)
  - Dyspepsia [Unknown]
  - Abnormal faeces [Not Recovered/Not Resolved]
  - Blood blister [Recovered/Resolved]
  - Pain [Not Recovered/Not Resolved]
  - Pancreatic carcinoma [Recovering/Resolving]
  - Splenectomy [Unknown]
  - Gastrointestinal pain [Unknown]
  - Weight increased [Recovering/Resolving]
  - Tumour of ampulla of Vater [Recovered/Resolved]

NARRATIVE: CASE EVENT DATE: 202011
